FAERS Safety Report 18048285 (Version 1)
Quarter: 2020Q3

REPORT INFORMATION
  Report Type: Spontaneous
  Country: US (occurrence: US)
  Receive Date: 20200720
  Receipt Date: 20200720
  Transmission Date: 20201103
  Serious: Yes (Other)
  Sender: FDA-Public Use
  Company Number: None

PATIENT
  Age: 47 Year
  Sex: Female
  Weight: 92.25 kg

DRUGS (11)
  1. LEVOTHYROXINE 0.05MG [Concomitant]
     Active Substance: LEVOTHYROXINE
  2. METOPROLOL ER 50MG LEGACY [Concomitant]
     Active Substance: METOPROLOL SUCCINATE
  3. LORAZEPAM 1MG [Concomitant]
     Active Substance: LORAZEPAM
  4. CYMBALTA [Suspect]
     Active Substance: DULOXETINE HYDROCHLORIDE
  5. NATURETHROID 3/4GRAIN [Concomitant]
  6. ZYRTEC [Concomitant]
     Active Substance: CETIRIZINE HYDROCHLORIDE
  7. ASPIRIN 81MG [Concomitant]
     Active Substance: ASPIRIN
  8. WOMAN^S MULTIVITAMIN [Concomitant]
  9. TRINTELLIX [Suspect]
     Active Substance: VORTIOXETINE HYDROBROMIDE
     Indication: DEPRESSION
     Dosage: ?          QUANTITY:1 TABLET(S);?
     Route: 048
     Dates: start: 20191119
  10. PROGESTERONE 200MG [Concomitant]
  11. FLONASE 50MCG NASAL SPRAY [Concomitant]

REACTIONS (15)
  - Insomnia [None]
  - Poor personal hygiene [None]
  - Irritability [None]
  - Loss of libido [None]
  - Suicidal ideation [None]
  - Disturbance in attention [None]
  - Anger [None]
  - Negative thoughts [None]
  - Decreased interest [None]
  - Anxiety [None]
  - Depression [None]
  - Decreased appetite [None]
  - Asthenia [None]
  - Drug ineffective [None]
  - Weight increased [None]

NARRATIVE: CASE EVENT DATE: 20200719
